FAERS Safety Report 8327007-6 (Version None)
Quarter: 2012Q2

REPORT INFORMATION
  Report Type: 
  Country: None (occurrence: None)
  Receive Date: 20120501
  Receipt Date: 20111111
  Transmission Date: 20120825
  Serious: No
  Sender: FDA-Public Use
  Company Number: US-SANOFI-AVENTIS-2011SA076530

PATIENT

DRUGS (1)
  1. APIDRA [Suspect]
     Route: 058
     Dates: start: 20111021

REACTIONS (1)
  - TINNITUS [None]
